FAERS Safety Report 6174161-0 (Version None)
Quarter: 2009Q2

REPORT INFORMATION
  Report Type: 
  Country: None (occurrence: None)
  Receive Date: 20090430
  Receipt Date: 20080411
  Transmission Date: 20091009
  Serious: No
  Sender: FDA-Public Use
  Company Number: US-ASTRAZENECA-2008UW07539

PATIENT
  Age: 52 Year
  Sex: Female
  Weight: 98.4 kg

DRUGS (2)
  1. NEXIUM [Suspect]
     Indication: EROSIVE OESOPHAGITIS
     Route: 048
     Dates: start: 19990101, end: 20080401
  2. VITAMINS [Concomitant]

REACTIONS (1)
  - POLYP [None]
